FAERS Safety Report 7760700-2 (Version None)
Quarter: 2011Q3

REPORT INFORMATION
  Report Type: 
  Country: None (occurrence: None)
  Receive Date: 20110919
  Receipt Date: 20110826
  Transmission Date: 20111222
  Serious: Yes (Other)
  Sender: FDA-Public Use
  Company Number: US-BAXTER-2011BH002185

PATIENT
  Age: 62 Year
  Sex: Male
  Weight: 75 kg

DRUGS (22)
  1. HEPARIN SODIUM INJECTION [Suspect]
     Route: 042
     Dates: start: 20080125, end: 20080125
  2. HEPARIN SODIUM INJECTION [Suspect]
     Route: 065
  3. COZAAR [Concomitant]
     Indication: HYPERTENSION
     Route: 048
  4. HEPARIN SODIUM INJECTION [Suspect]
     Route: 042
     Dates: start: 20080125, end: 20080125
  5. HEPARIN [Suspect]
     Indication: PRODUCT USED FOR UNKNOWN INDICATION
     Route: 042
     Dates: start: 20080123, end: 20080123
  6. HEPARIN SODIUM INJECTION [Suspect]
     Indication: CORONARY ARTERY BYPASS
     Route: 042
     Dates: start: 20080124, end: 20080124
  7. HEPARIN SODIUM INJECTION [Suspect]
     Route: 042
     Dates: start: 20080125, end: 20080125
  8. LIPITOR [Concomitant]
     Indication: PRODUCT USED FOR UNKNOWN INDICATION
     Route: 065
  9. ZOCOR [Concomitant]
     Indication: HYPERLIPIDAEMIA
     Route: 048
  10. HEPARIN SODIUM 5,000 UNITS IN DEXTROSE 5% [Suspect]
     Indication: PRODUCT USED FOR UNKNOWN INDICATION
     Route: 042
     Dates: start: 20080123, end: 20080125
  11. HEPARIN SODIUM INJECTION [Suspect]
     Route: 042
     Dates: start: 20080124, end: 20080124
  12. HEPARIN SODIUM INJECTION [Suspect]
     Route: 042
     Dates: start: 20080125, end: 20080125
  13. HEPARIN SODIUM 1,000 UNITS AND SODIUM CHLORIDE 0.9% [Suspect]
     Indication: CORONARY ARTERY BYPASS
     Route: 065
     Dates: start: 20080125, end: 20080125
  14. HEPARIN SODIUM INJECTION [Suspect]
     Route: 042
     Dates: start: 20080124, end: 20080124
  15. HEPARIN SODIUM INJECTION [Suspect]
     Route: 042
     Dates: start: 20080125, end: 20080125
  16. HEPARIN SODIUM INJECTION [Suspect]
     Indication: CATHETERISATION CARDIAC
     Route: 042
     Dates: start: 20080124, end: 20080124
  17. HEPARIN SODIUM INJECTION [Suspect]
     Route: 042
     Dates: start: 20080124, end: 20080124
  18. HEPARIN SODIUM INJECTION [Suspect]
     Route: 042
     Dates: start: 20080125, end: 20080125
  19. LOPRESSOR [Concomitant]
     Indication: HYPERTENSION
     Route: 048
  20. HEPARIN SODIUM INJECTION [Suspect]
     Route: 042
     Dates: start: 20080124, end: 20080124
  21. HEPARIN SODIUM INJECTION [Suspect]
     Route: 065
  22. ASPIRIN [Concomitant]
     Indication: ANTIPLATELET THERAPY
     Route: 048

REACTIONS (10)
  - THROMBOCYTOPENIA [None]
  - RESPIRATORY FAILURE [None]
  - ARRHYTHMIA [None]
  - ANAEMIA POSTOPERATIVE [None]
  - CARDIOGENIC SHOCK [None]
  - BLOOD PRESSURE FLUCTUATION [None]
  - CARDIAC FAILURE [None]
  - INFARCTION [None]
  - DRUG HYPERSENSITIVITY [None]
  - PYREXIA [None]
